FAERS Safety Report 7793533-1 (Version None)
Quarter: 2011Q4

REPORT INFORMATION
  Report Type: 
  Country: None (occurrence: None)
  Receive Date: 20111003
  Receipt Date: 20110929
  Transmission Date: 20120403
  Serious: Yes (Other)
  Sender: FDA-Public Use
  Company Number: TR-ABBOTT-11P-161-0859477-00

PATIENT
  Age: 7 Year
  Sex: Female

DRUGS (1)
  1. LUCRIN DEPOT-PED [Suspect]
     Indication: PRECOCIOUS PUBERTY

REACTIONS (1)
  - BLINDNESS [None]
